FAERS Safety Report 6182482-0 (Version None)
Quarter: 2009Q2

REPORT INFORMATION
  Report Type: 
  Country: None (occurrence: None)
  Receive Date: 20090507
  Receipt Date: 20090423
  Transmission Date: 20091009
  Serious: Yes (Hospitalization)
  Sender: FDA-Public Use
  Company Number: JP-ROCHE-616155

PATIENT
  Sex: Female
  Weight: 43 kg

DRUGS (8)
  1. XELODA [Suspect]
     Indication: COLON CANCER RECURRENT
     Dosage: DRUG: XELODA 300
     Route: 048
     Dates: start: 20081211, end: 20090127
  2. AVASTIN [Suspect]
     Indication: COLON CANCER RECURRENT
     Route: 041
     Dates: start: 20081118, end: 20090108
  3. ELPLAT [Concomitant]
     Route: 041
     Dates: start: 20080826, end: 20080911
  4. ELPLAT [Concomitant]
     Route: 041
     Dates: start: 20081118, end: 20090108
  5. FLUOROURACIL [Concomitant]
     Route: 041
     Dates: start: 20080826, end: 20080911
  6. FLUOROURACIL [Concomitant]
     Route: 041
     Dates: start: 20081118, end: 20090108
  7. ISOVORIN [Concomitant]
     Route: 041
     Dates: start: 20080826, end: 20080911
  8. ISOVORIN [Concomitant]
     Route: 041
     Dates: start: 20081118, end: 20090108

REACTIONS (2)
  - CEREBRAL AMYLOID ANGIOPATHY [None]
  - CEREBRAL HAEMORRHAGE [None]
